FAERS Safety Report 5935242-7 (Version None)
Quarter: 2008Q4

REPORT INFORMATION
  Report Type: 
  Country: None (occurrence: None)
  Receive Date: 20081028
  Receipt Date: 20081017
  Transmission Date: 20090506
  Serious: Yes (Other)
  Sender: FDA-Public Use
  Company Number: 2008SP021240

PATIENT
  Age: 55 Year
  Sex: Male

DRUGS (1)
  1. TEMODAL [Suspect]
     Indication: MULTIPLE MYELOMA
     Dosage: 75 MG/M2; PO
     Route: 048
     Dates: start: 20080901

REACTIONS (3)
  - INFECTION [None]
  - LEUKOPENIA [None]
  - PLATELET COUNT DECREASED [None]
